FAERS Safety Report 9355193 (Version 1)
Quarter: 2013Q2

REPORT INFORMATION
  Report Type: Report from Study
  Country: US (occurrence: US)
  Receive Date: 20130619
  Receipt Date: 20130619
  Transmission Date: 20140414
  Serious: Yes (Death, Other)
  Sender: FDA-Public Use
  Company Number: PHEH2013US013044

PATIENT
  Age: 61 Year
  Sex: Male

DRUGS (4)
  1. GLEEVEC [Suspect]
     Indication: NEOPLASM MALIGNANT
     Dosage: 400 MG, UNK
     Route: 048
     Dates: start: 20120430
  2. GABAPENTIN [Concomitant]
     Dosage: UNK UKN, UNK
  3. ALLOPURINOL [Concomitant]
     Dosage: UNK UKN, UNK
  4. HYDROXYUREA [Concomitant]
     Dosage: UNK UKN, UNK

REACTIONS (3)
  - Death [Fatal]
  - Fall [Unknown]
  - Head injury [Unknown]
